FAERS Safety Report 12461830 (Version 1)
Quarter: 2016Q2

REPORT INFORMATION
  Report Type: Spontaneous
  Country: US (occurrence: US)
  Receive Date: 20160613
  Receipt Date: 20160613
  Transmission Date: 20160815
  Serious: No
  Sender: FDA-Public Use
  Company Number: US-BAYER-2016-115140

PATIENT
  Age: 77 Year
  Sex: Male
  Weight: 68.27 kg

DRUGS (5)
  1. ACEBUTOLOL [Concomitant]
     Active Substance: ACEBUTOLOL
  2. SIMVASTATIN. [Concomitant]
     Active Substance: SIMVASTATIN
  3. INSULIN [Concomitant]
     Active Substance: INSULIN NOS
  4. ALEVE [Suspect]
     Active Substance: NAPROXEN SODIUM
     Indication: NOCTURIA
     Dosage: 2 DF, HS
     Route: 048
  5. L-THYROXINE [Concomitant]
     Active Substance: LEVOTHYROXINE

REACTIONS (3)
  - Product use issue [None]
  - Off label use [None]
  - Therapeutic response unexpected [None]
